FAERS Safety Report 8153509-1 (Version None)
Quarter: 2012Q1

REPORT INFORMATION
  Report Type: 
  Country: None (occurrence: None)
  Receive Date: 20120216
  Receipt Date: 20120216
  Transmission Date: 20120608
  Serious: Yes (Hospitalization)
  Sender: FDA-Public Use
  Company Number: None

PATIENT
  Sex: Male
  Weight: 96.75 kg

DRUGS (2)
  1. CARBOPLATIN [Suspect]
     Dosage: 586 MG
     Dates: end: 20120130
  2. TAXOL [Suspect]
     Dosage: 374 MG
     Dates: end: 20120130

REACTIONS (8)
  - HYPOXIA [None]
  - DYSPNOEA [None]
  - CARDIAC FAILURE CONGESTIVE [None]
  - CONDITION AGGRAVATED [None]
  - FATIGUE [None]
  - CARDIAC DISORDER [None]
  - HYPOTENSION [None]
  - FEELING ABNORMAL [None]
